FAERS Safety Report 7338406-3 (Version None)
Quarter: 2011Q1

REPORT INFORMATION
  Report Type: 
  Country: None (occurrence: None)
  Receive Date: 20110308
  Receipt Date: 20110303
  Transmission Date: 20110831
  Serious: Yes (Death)
  Sender: FDA-Public Use
  Company Number: GB-ABBOTT-11P-167-0709021-00

PATIENT
  Sex: Male
  Weight: 82 kg

DRUGS (2)
  1. HUMIRA [Suspect]
     Indication: RHEUMATOID ARTHRITIS
     Dosage: 1 IN 2 WK, PT STILL TAKING 20 SEP 07
     Route: 058
     Dates: start: 20060104
  2. METHOTREXATE [Concomitant]
     Indication: PRODUCT USED FOR UNKNOWN INDICATION
     Dosage: PATIENT STILL ON DRUG ON 20 SEP 2007
     Dates: start: 20060104

REACTIONS (1)
  - ACUTE MYOCARDIAL INFARCTION [None]
